FAERS Safety Report 18246878 (Version 1)
Quarter: 2020Q3

REPORT INFORMATION
  Report Type: Spontaneous
  Country: US (occurrence: US)
  Receive Date: 20200909
  Receipt Date: 20200909
  Transmission Date: 20201103
  Serious: No
  Sender: FDA-Public Use
  Company Number: None

PATIENT
  Age: 60 Year
  Sex: Female
  Weight: 69.3 kg

DRUGS (5)
  1. KISQALI [Suspect]
     Active Substance: RIBOCICLIB
     Indication: BREAST CANCER FEMALE
     Route: 048
     Dates: start: 20200423
  2. FULVESTRANT. [Suspect]
     Active Substance: FULVESTRANT
     Indication: BREAST CANCER FEMALE
     Dosage: ?          OTHER FREQUENCY:MONTHLY;?
     Route: 030
     Dates: start: 20200421
  3. ELIQUIS [Concomitant]
     Active Substance: APIXABAN
  4. BIOTIN [Concomitant]
     Active Substance: BIOTIN
  5. CLONAZEPAM 0.5MG [Concomitant]
     Active Substance: CLONAZEPAM

REACTIONS (2)
  - Dry skin [None]
  - Alopecia [None]

NARRATIVE: CASE EVENT DATE: 20200909
